FAERS Safety Report 7997671-X (Version None)
Quarter: 2011Q4

REPORT INFORMATION
  Report Type: 
  Country: None (occurrence: None)
  Receive Date: 20111221
  Receipt Date: 20111214
  Transmission Date: 20120403
  Serious: Yes (Hospitalization, Other)
  Sender: FDA-Public Use
  Company Number: US-JNJFOC-20110807457

PATIENT
  Sex: Female

DRUGS (5)
  1. PREDNISONE TAB [Suspect]
     Indication: INFLAMMATION
  2. LEVAQUIN [Suspect]
     Route: 042
     Dates: start: 20090808
  3. LEVAQUIN [Suspect]
     Indication: CELLULITIS
     Route: 048
     Dates: start: 20090801
  4. PREDNISONE TAB [Suspect]
     Indication: SWELLING
  5. CIPROFLOXACIN [Suspect]
     Indication: INFECTION
     Dates: start: 20090420

REACTIONS (2)
  - TENDON RUPTURE [None]
  - FEMUR FRACTURE [None]
